FAERS Safety Report 6546827-1 (Version None)
Quarter: 2010Q1

REPORT INFORMATION
  Report Type: 
  Country: None (occurrence: None)
  Receive Date: 20100122
  Receipt Date: 20100112
  Transmission Date: 20100710
  Serious: Yes (Other)
  Sender: FDA-Public Use
  Company Number: JP-PFIZER INC-2009312167

PATIENT
  Age: 61 Year
  Sex: Male

DRUGS (6)
  1. ADRIACIN [Suspect]
     Indication: BLADDER CANCER
     Dosage: 30 MG, 1X/DAY
     Route: 043
     Dates: start: 20091202, end: 20091202
  2. CEFAZOLIN SODIUM [Concomitant]
     Dosage: 1 G, 2X/DAY IJ
     Dates: start: 20091202, end: 20091202
  3. CEFAZOLIN SODIUM [Concomitant]
     Dosage: 1 G, 1X/DAY IJ
     Dates: start: 20091203, end: 20091203
  4. FENTANYL [Concomitant]
     Dosage: 0.1 MG, IJ
     Dates: start: 20091202, end: 20091202
  5. SALOBEL [Concomitant]
     Dosage: 100 MG, 1X/DAY
     Route: 048
  6. NEORAL [Concomitant]
     Dosage: 50 MG, 2X/DAY
     Route: 048

REACTIONS (1)
  - ALLERGIC CYSTITIS [None]
